FAERS Safety Report 13738205 (Version 1)
Quarter: 2017Q3

REPORT INFORMATION
  Report Type: Spontaneous
  Country: US (occurrence: US)
  Receive Date: 20170710
  Receipt Date: 20170710
  Transmission Date: 20171127
  Serious: No
  Sender: FDA-Public Use
  Company Number: US-BAYER-2017-128259

PATIENT
  Sex: Female

DRUGS (1)
  1. MIRENA [Suspect]
     Active Substance: LEVONORGESTREL
     Indication: CONTRACEPTION
     Dosage: 20 MCG/24HR, CONT
     Route: 015
     Dates: start: 201403

REACTIONS (5)
  - Breast tenderness [None]
  - Hormone level abnormal [None]
  - Breast swelling [None]
  - Breast pain [None]
  - Acne [None]

NARRATIVE: CASE EVENT DATE: 2017
